FAERS Safety Report 11186852 (Version 1)
Quarter: 2015Q2

REPORT INFORMATION
  Report Type: Spontaneous
  Country: IT (occurrence: IT)
  Receive Date: 20150614
  Receipt Date: 20150614
  Transmission Date: 20150821
  Serious: Yes (Life-Threatening)
  Sender: FDA-Public Use
  Company Number: IT-TEVA-569408ACC

PATIENT
  Age: 55 Year
  Sex: Female

DRUGS (1)
  1. AMOXICILLINA RATIOPHARM - 1 G COMPRESSE- TEVA ITALIA S.R.L. [Suspect]
     Active Substance: AMOXICILLIN
     Indication: PRODUCT USED FOR UNKNOWN INDICATION
     Dosage: 1 G TOTAL
     Route: 048
     Dates: start: 20150603, end: 20150603

REACTIONS (3)
  - Erythema [Recovering/Resolving]
  - Bronchospasm [Recovering/Resolving]
  - Pruritus [Recovering/Resolving]

NARRATIVE: CASE EVENT DATE: 20150603
